FAERS Safety Report 20325788 (Version 1)
Quarter: 2022Q1

REPORT INFORMATION
  Report Type: Spontaneous
  Country: US (occurrence: US)
  Receive Date: 20220112
  Receipt Date: 20220112
  Transmission Date: 20220423
  Serious: No
  Sender: FDA-Public Use
  Company Number: US-AUROBINDO-AUR-APL-2021-044729

PATIENT
  Age: 27 Year

DRUGS (1)
  1. DEXTROAMPHET SACCHARAT, AMPHET ASPARTATE, DEXTROAMPHET SULFATE AND AMP [Suspect]
     Active Substance: AMPHETAMINE ASPARTATE\AMPHETAMINE SULFATE\DEXTROAMPHETAMINE SACCHARATE\DEXTROAMPHETAMINE SULFATE
     Indication: Attention deficit hyperactivity disorder
     Dosage: UNK
     Route: 065

REACTIONS (22)
  - Abdominal discomfort [Unknown]
  - Hypoaesthesia [Unknown]
  - Chest pain [Unknown]
  - Somnolence [Unknown]
  - Erythema [Unknown]
  - Cold sweat [Unknown]
  - Hyperhidrosis [Unknown]
  - Increased appetite [Unknown]
  - Anger [Unknown]
  - Depression [Unknown]
  - Crying [Unknown]
  - Rash [Unknown]
  - Chest discomfort [Unknown]
  - Back pain [Unknown]
  - Neck pain [Unknown]
  - Diarrhoea [Unknown]
  - Anal fissure [Unknown]
  - Bruxism [Unknown]
  - Heart rate increased [Unknown]
  - Blood pressure increased [Unknown]
  - Product substitution issue [Unknown]
  - Drug ineffective [Unknown]
